FAERS Safety Report 5120272-8 (Version None)
Quarter: 2006Q3

REPORT INFORMATION
  Report Type: 
  Country: None (occurrence: None)
  Receive Date: 20060928
  Receipt Date: 20060921
  Transmission Date: 20061208
  Serious: Yes (Hospitalization, Other)
  Sender: FDA-Public Use
  Company Number: 2006110684

PATIENT
  Age: 41 Year
  Sex: Female
  Weight: 54 kg

DRUGS (5)
  1. ZOLOFT [Suspect]
     Indication: PANIC DISORDER
     Dosage: 50 MG, ORAL
     Route: 048
     Dates: start: 20060722, end: 20060804
  2. TOLEDOMIN (MILNACIPRAN HYDROCHLORIDE) [Concomitant]
  3. DOGMATYL (SULPIRIDE) [Concomitant]
  4. RHYTHMY (RILMAZAFONE) [Concomitant]
  5. BACLOFEN [Concomitant]

REACTIONS (8)
  - ANXIETY [None]
  - CARDIOMYOPATHY [None]
  - DEPRESSION [None]
  - DYSPNOEA [None]
  - HEADACHE [None]
  - NASOPHARYNGITIS [None]
  - NAUSEA [None]
  - SHOCK [None]
